FAERS Safety Report 4551127-5 (Version None)
Quarter: 2005Q1

REPORT INFORMATION
  Report Type: 
  Country: None (occurrence: None)
  Receive Date: 20050107
  Receipt Date: 20041230
  Transmission Date: 20050727
  Serious: Yes (Other)
  Sender: FDA-Public Use
  Company Number: S04-USA-08018-01

PATIENT
  Age: 54 Year
  Sex: Male

DRUGS (1)
  1. LEXAPRO [Suspect]
     Indication: DEPRESSION
     Dosage: 10 MG QD PO
     Route: 048
     Dates: start: 20040301, end: 20041228

REACTIONS (2)
  - ERECTILE DYSFUNCTION [None]
  - PROSTATIC SPECIFIC ANTIGEN INCREASED [None]
